FAERS Safety Report 10423496 (Version 1)
Quarter: 2014Q3

REPORT INFORMATION
  Report Type: Spontaneous
  Country: US (occurrence: None)
  Receive Date: 20140722
  Receipt Date: 20140722
  Transmission Date: 20150326
  Serious: No
  Sender: FDA-Public Use
  Company Number: 163-10004-14063463

PATIENT
  Age: 57 Year
  Sex: Male
  Weight: 83.92 kg

DRUGS (3)
  1. ADVIL [Concomitant]
     Active Substance: IBUPROFEN
  2. OTEZLA [Suspect]
     Active Substance: APREMILAST
     Indication: PSORIATIC ARTHROPATHY
     Route: 048
     Dates: start: 20140611
  3. EXCEDRIN (EXCEDRIN / USA/) [Concomitant]

REACTIONS (4)
  - Dizziness [None]
  - Nasal congestion [None]
  - Oropharyngeal pain [None]
  - Diarrhoea [None]

NARRATIVE: CASE EVENT DATE: 20140612
